FAERS Safety Report 8238398-9 (Version None)
Quarter: 2012Q1

REPORT INFORMATION
  Report Type: 
  Country: None (occurrence: None)
  Receive Date: 20120327
  Receipt Date: 20120314
  Transmission Date: 20120608
  Serious: Yes (Death, Hospitalization)
  Sender: FDA-Public Use
  Company Number: IT-ROCHE-1048788

PATIENT
  Sex: Female

DRUGS (4)
  1. FLUOROURACIL [Concomitant]
     Route: 041
     Dates: start: 20120206, end: 20120208
  2. IRINOTECAN HCL [Concomitant]
     Route: 040
     Dates: start: 20120206, end: 20120207
  3. AVASTIN [Suspect]
     Indication: COLON CANCER
     Route: 041
     Dates: start: 20120206, end: 20120206
  4. LEVOFOLENE [Concomitant]
     Route: 040
     Dates: start: 20120206, end: 20120207

REACTIONS (5)
  - ACUTE HEPATIC FAILURE [None]
  - VISUAL IMPAIRMENT [None]
  - HEADACHE [None]
  - APHASIA [None]
  - CEREBRAL INFARCTION [None]
